FAERS Safety Report 24552751 (Version 1)
Quarter: 2024Q4

REPORT INFORMATION
  Report Type: Spontaneous
  Country: JP (occurrence: JP)
  Receive Date: 20241027
  Receipt Date: 20241027
  Transmission Date: 20250115
  Serious: Yes (Hospitalization)
  Sender: MERCK
  Company Number: JP-MSD-2410JPN003144J

PATIENT
  Age: 69 Year
  Sex: Female

DRUGS (1)
  1. KEYTRUDA [Suspect]
     Active Substance: PEMBROLIZUMAB
     Indication: Triple negative breast cancer
     Dosage: UNK
     Route: 065

REACTIONS (2)
  - Adrenocorticotropic hormone deficiency [Recovering/Resolving]
  - Secondary adrenocortical insufficiency [Recovering/Resolving]
